FAERS Safety Report 25546313 (Version 1)
Quarter: 2025Q3

REPORT INFORMATION
  Report Type: Spontaneous
  Country: EU (occurrence: EU)
  Receive Date: 20250713
  Receipt Date: 20250713
  Transmission Date: 20251021
  Serious: Yes (Other)
  Sender: SANOFI AVENTIS
  Company Number: EU-EMA-DD-20250630-7482709-064835

PATIENT
  Age: 47 Year
  Sex: Female

DRUGS (17)
  1. RIVAROXABAN [Suspect]
     Active Substance: RIVAROXABAN
     Indication: Device related thrombosis
     Dosage: 20 MG, QD
  2. RIVAROXABAN [Suspect]
     Active Substance: RIVAROXABAN
     Dosage: 15 MG, QD
  3. OXALIPLATIN [Suspect]
     Active Substance: OXALIPLATIN
     Indication: Colon cancer recurrent
  4. OXALIPLATIN [Suspect]
     Active Substance: OXALIPLATIN
     Indication: Metastases to peritoneum
  5. OXALIPLATIN [Suspect]
     Active Substance: OXALIPLATIN
     Indication: Metastases to ovary
  6. BEVACIZUMAB [Concomitant]
     Active Substance: BEVACIZUMAB
     Indication: Colon cancer recurrent
  7. BEVACIZUMAB [Concomitant]
     Active Substance: BEVACIZUMAB
     Indication: Metastases to peritoneum
  8. BEVACIZUMAB [Concomitant]
     Active Substance: BEVACIZUMAB
     Indication: Metastases to ovary
  9. FLUOROURACIL [Concomitant]
     Active Substance: FLUOROURACIL
     Indication: Metastases to ovary
  10. FLUOROURACIL [Concomitant]
     Active Substance: FLUOROURACIL
     Indication: Metastases to peritoneum
  11. FLUOROURACIL [Concomitant]
     Active Substance: FLUOROURACIL
     Indication: Colon cancer
  12. LEUCOVORIN CALCIUM [Concomitant]
     Active Substance: LEUCOVORIN CALCIUM
     Indication: Colon cancer recurrent
  13. LEUCOVORIN CALCIUM [Concomitant]
     Active Substance: LEUCOVORIN CALCIUM
     Indication: Metastases to ovary
  14. LEUCOVORIN CALCIUM [Concomitant]
     Active Substance: LEUCOVORIN CALCIUM
     Indication: Metastases to peritoneum
  15. IRINOTECAN [Concomitant]
     Active Substance: IRINOTECAN
     Indication: Metastases to peritoneum
  16. IRINOTECAN [Concomitant]
     Active Substance: IRINOTECAN
     Indication: Colon cancer recurrent
  17. IRINOTECAN [Concomitant]
     Active Substance: IRINOTECAN
     Indication: Metastases to ovary

REACTIONS (3)
  - Gingival bleeding [Recovered/Resolved]
  - Epistaxis [Recovered/Resolved]
  - Off label use [Unknown]
